FAERS Safety Report 5899593-7 (Version None)
Quarter: 2008Q3

REPORT INFORMATION
  Report Type: 
  Country: None (occurrence: None)
  Receive Date: 20080926
  Receipt Date: 20080923
  Transmission Date: 20090109
  Serious: Yes (Other)
  Sender: FDA-Public Use
  Company Number: PHEH2008US04838

PATIENT

DRUGS (1)
  1. VIVELLE-DOT [Suspect]
     Dosage: UNK
     Route: 062

REACTIONS (1)
  - GASTROINTESTINAL HAEMORRHAGE [None]
